FAERS Safety Report 9629710 (Version 2)
Quarter: 2013Q4

REPORT INFORMATION
  Report Type: Spontaneous
  Country: GB (occurrence: GB)
  Receive Date: 20131017
  Receipt Date: 20131017
  Transmission Date: 20140711
  Serious: Yes (Hospitalization, Other)
  Sender: FDA-Public Use
  Company Number: GB-JNJFOC-20130712659

PATIENT
  Age: 57 Year
  Sex: Female

DRUGS (10)
  1. STELARA [Suspect]
     Indication: PSORIASIS
     Route: 058
     Dates: end: 20130426
  2. STELARA [Suspect]
     Indication: PSORIASIS
     Route: 058
     Dates: start: 20131008
  3. STELARA [Suspect]
     Indication: PSORIASIS
     Route: 058
     Dates: start: 20130717
  4. PARACETAMOL [Concomitant]
     Route: 065
  5. CODEINE [Concomitant]
     Route: 065
  6. MELOXICAM [Concomitant]
     Route: 065
  7. BENDROFLUMETHIAZIDE [Concomitant]
     Route: 048
  8. SIMVASTATIN [Concomitant]
     Route: 065
  9. METFORMIN [Concomitant]
     Route: 048
  10. GLICLAZIDE [Concomitant]
     Route: 048

REACTIONS (2)
  - Diabetes mellitus [Not Recovered/Not Resolved]
  - Psoriasis [Not Recovered/Not Resolved]
